FAERS Safety Report 17527246 (Version 6)
Quarter: 2022Q2

REPORT INFORMATION
  Report Type: Spontaneous
  Country: US (occurrence: US)
  Receive Date: 20200311
  Receipt Date: 20220428
  Transmission Date: 20220720
  Serious: Yes (Other)
  Sender: FDA-Public Use
  Company Number: US-PFIZER INC-2020105279

PATIENT
  Age: 53 Year
  Sex: Female
  Weight: 64.86 kg

DRUGS (3)
  1. LYRICA [Suspect]
     Active Substance: PREGABALIN
     Indication: Fibromyalgia
     Dosage: 50 MG, 1X/DAY [ONE AT NIGHT TIME]
  2. LYRICA [Suspect]
     Active Substance: PREGABALIN
     Indication: Sleep disorder
  3. LEVOTHYROXINE [Concomitant]
     Active Substance: LEVOTHYROXINE
     Indication: Thyroid disorder
     Dosage: 112 UG, UNK

REACTIONS (2)
  - Neoplasm malignant [Unknown]
  - Tremor [Unknown]

NARRATIVE: CASE EVENT DATE: 20150101
